FAERS Safety Report 9777593 (Version 5)
Quarter: 2015Q3

REPORT INFORMATION
  Report Type: Spontaneous
  Country: IT (occurrence: IT)
  Receive Date: 20131222
  Receipt Date: 20150727
  Transmission Date: 20151125
  Serious: Yes (Death, Other)
  Sender: FDA-Public Use
  Company Number: IT-TEVA-450614ISR

PATIENT
  Age: 60 Year
  Sex: Male

DRUGS (1)
  1. CISPLATIN. [Suspect]
     Active Substance: CISPLATIN
     Indication: LARYNGEAL CANCER
     Route: 065
     Dates: start: 201005

REACTIONS (7)
  - Lung disorder [Fatal]
  - Second primary malignancy [Unknown]
  - Acute myeloid leukaemia [Fatal]
  - Myeloproliferative disorder [Fatal]
  - Pancytopenia [Unknown]
  - Myelodysplastic syndrome [Fatal]
  - Chronic myelomonocytic leukaemia [Fatal]

NARRATIVE: CASE EVENT DATE: 201105
